FAERS Safety Report 5835316-5 (Version None)
Quarter: 2008Q3

REPORT INFORMATION
  Report Type: 
  Country: None (occurrence: None)
  Receive Date: 20080804
  Receipt Date: 20080723
  Transmission Date: 20090109
  Serious: Yes (Other)
  Sender: FDA-Public Use
  Company Number: 2007US000943

PATIENT
  Sex: Male

DRUGS (5)
  1. AMEVIVE [Suspect]
     Indication: DRUG EXPOSURE DURING PREGNANCY
     Dosage: INTRAMUSCULAR
     Route: 030
     Dates: start: 20030916, end: 20070807
  2. VASOTEC [Concomitant]
  3. NORVASC [Concomitant]
  4. HYDROCHLOROTHIAZIDE [Concomitant]
  5. BETAMETHASONE/NEOMYCIN (BETAMETHASONE) [Concomitant]

REACTIONS (5)
  - BRADYCARDIA NEONATAL [None]
  - CAESAREAN SECTION [None]
  - MATERNAL DRUGS AFFECTING FOETUS [None]
  - NEONATAL RESPIRATORY DISTRESS SYNDROME [None]
  - PREMATURE BABY [None]
